FAERS Safety Report 5725047-4 (Version None)
Quarter: 2008Q2

REPORT INFORMATION
  Report Type: 
  Country: None (occurrence: None)
  Receive Date: 20080501
  Receipt Date: 20080421
  Transmission Date: 20081010
  Serious: Yes (Other)
  Sender: FDA-Public Use
  Company Number: DE-ELI_LILLY_AND_COMPANY-DE200804005416

PATIENT
  Sex: Female

DRUGS (3)
  1. CYMBALTA [Suspect]
     Indication: PAIN
     Dosage: 60 MG, DAILY (1/D)
     Route: 048
     Dates: start: 20080403, end: 20080407
  2. KATADOLON /00890102/ [Concomitant]
     Dosage: UNK, UNKNOWN
     Route: 048
     Dates: start: 20080403
  3. METAMIZOL [Concomitant]
     Dosage: UNK, UNKNOWN

REACTIONS (5)
  - ANOREXIA [None]
  - ANXIETY [None]
  - DEPRESSION [None]
  - NAUSEA [None]
  - VOMITING [None]
